FAERS Safety Report 8247693-9 (Version None)
Quarter: 2012Q1

REPORT INFORMATION
  Report Type: 
  Country: None (occurrence: None)
  Receive Date: 20120330
  Receipt Date: 20120329
  Transmission Date: 20120608
  Serious: No
  Sender: FDA-Public Use
  Company Number: US-PFIZER INC-2012080712

PATIENT
  Sex: Male
  Weight: 72.562 kg

DRUGS (3)
  1. FINASTERIDE [Concomitant]
     Indication: PROSTATOMEGALY
     Dosage: 5 MG, 1X/DAY
  2. LIPITOR [Suspect]
     Indication: BLOOD CHOLESTEROL INCREASED
     Dosage: 40 MG, 1X/DAY
     Dates: start: 20111001, end: 20120301
  3. HYTRIN [Concomitant]
     Indication: PROSTATOMEGALY
     Dosage: 7 MG, 1X/DAY

REACTIONS (2)
  - ARTHRALGIA [None]
  - CHEST DISCOMFORT [None]
